FAERS Safety Report 5132058-9 (Version None)
Quarter: 2006Q4

REPORT INFORMATION
  Report Type: 
  Country: None (occurrence: None)
  Receive Date: 20061017
  Receipt Date: 20061004
  Transmission Date: 20070319
  Serious: Yes (Hospitalization)
  Sender: FDA-Public Use
  Company Number: SPV1-2006-01042

PATIENT
  Age: 50 Year
  Sex: Female

DRUGS (3)
  1. CARBATROL [Suspect]
     Dosage: 200 MG 3XS DAILY, ORAL
     Route: 048
     Dates: start: 19970101
  2. PHENOBARBITAL /00114201/ (HYOSCYAMINE SULFATE, HYOSCINE HYDROBROMIDE, [Concomitant]
  3. METOPROLOL TARTRATE [Concomitant]

REACTIONS (5)
  - AMNESIA [None]
  - CONVULSION [None]
  - FATIGUE [None]
  - FEELING ABNORMAL [None]
  - WEIGHT DECREASED [None]
